FAERS Safety Report 4635098-9 (Version None)
Quarter: 2005Q2

REPORT INFORMATION
  Report Type: 
  Country: None (occurrence: None)
  Receive Date: 20050414
  Receipt Date: 20010904
  Transmission Date: 20051028
  Serious: Yes (Life-Threatening, Hospitalization, Disabling)
  Sender: FDA-Public Use
  Company Number: US-MERCK-01090259

PATIENT
  Age: 72 Year
  Sex: Male

DRUGS (3)
  1. ZOCOR [Suspect]
     Indication: HYPERCHOLESTEROLAEMIA
     Route: 048
     Dates: start: 19990101, end: 20010101
  2. TAMBOCOR [Concomitant]
     Route: 065
  3. [THERAPY UNSPECIFIED] [Concomitant]
     Route: 065

REACTIONS (12)
  - ABASIA [None]
  - ABDOMINAL DISTENSION [None]
  - ALOPECIA [None]
  - DRUG HYPERSENSITIVITY [None]
  - DYSPNOEA [None]
  - LIVER DISORDER [None]
  - MUSCLE ATROPHY [None]
  - MUSCULAR WEAKNESS [None]
  - MYALGIA [None]
  - PAIN IN EXTREMITY [None]
  - RENAL DISORDER [None]
  - SWELLING [None]
